FAERS Safety Report 7446019-8 (Version None)
Quarter: 2011Q2

REPORT INFORMATION
  Report Type: 
  Country: None (occurrence: None)
  Receive Date: 20110429
  Receipt Date: 20110420
  Transmission Date: 20111010
  Serious: Yes (Other)
  Sender: FDA-Public Use
  Company Number: BE-GENZYME-CLOF-1001566

PATIENT
  Sex: Female
  Weight: 70 kg

DRUGS (4)
  1. CLORAZEPATE DIPOTASSIUM [Concomitant]
     Indication: PROPHYLAXIS
     Dosage: 20 MG, UNK
     Route: 042
     Dates: start: 20110330, end: 20110407
  2. CYTARABINE [Suspect]
     Indication: ACUTE MYELOID LEUKAEMIA
     Dosage: 360 MG, UNK
     Route: 042
     Dates: start: 20110331, end: 20110406
  3. EVOLTRA [Suspect]
     Indication: ACUTE MYELOID LEUKAEMIA
     Dosage: 18 MG, UNK
     Route: 042
     Dates: start: 20110331, end: 20110404
  4. IDARUBICIN [Suspect]
     Indication: ACUTE MYELOID LEUKAEMIA
     Dosage: 21.6 MG, UNK
     Route: 042
     Dates: start: 20110331, end: 20110402

REACTIONS (4)
  - PYREXIA [None]
  - DERMATITIS EXFOLIATIVE [None]
  - PALMAR-PLANTAR ERYTHRODYSAESTHESIA SYNDROME [None]
  - CHILLS [None]
